FAERS Safety Report 14781680 (Version 1)
Quarter: 2018Q2

REPORT INFORMATION
  Report Type: Spontaneous
  Country: US (occurrence: US)
  Receive Date: 20180420
  Receipt Date: 20180420
  Transmission Date: 20180711
  Serious: No
  Sender: FDA-Public Use
  Company Number: US-TEVA-2018-US-867026

PATIENT
  Sex: Female

DRUGS (1)
  1. HYDROCORTISONE WITH ALOE MAXIMUM STRENGTH [Suspect]
     Active Substance: HYDROCORTISONE
     Indication: RASH PRURITIC

REACTIONS (2)
  - Erythema [Unknown]
  - Rash pruritic [Unknown]
